FAERS Safety Report 6294341-3 (Version None)
Quarter: 2009Q3

REPORT INFORMATION
  Report Type: 
  Country: None (occurrence: None)
  Receive Date: 20090803
  Receipt Date: 20090722
  Transmission Date: 20100115
  Serious: Yes (Hospitalization)
  Sender: FDA-Public Use
  Company Number: FR-PFIZER INC-2009244481

PATIENT
  Age: 35 Year

DRUGS (1)
  1. CYTOTEC [Suspect]
     Indication: ABORTION SPONTANEOUS
     Dosage: 2 DF, 2X/DAY, SINGLE USE IN 48 HOURS
     Dates: start: 20090601, end: 20090601

REACTIONS (2)
  - OFF LABEL USE [None]
  - PANCREATITIS ACUTE [None]
